FAERS Safety Report 6856713-5 (Version None)
Quarter: 2010Q3

REPORT INFORMATION
  Report Type: 
  Country: None (occurrence: None)
  Receive Date: 20100719
  Receipt Date: 20100714
  Transmission Date: 20110219
  Serious: Yes (Other)
  Sender: FDA-Public Use
  Company Number: CHPA2010US11450

PATIENT
  Age: 56 Year
  Sex: Female
  Weight: 49.887 kg

DRUGS (1)
  1. EXCEDRIN (MIGRAINE) [Suspect]
     Indication: HEADACHE
     Dosage: 4-6 DF, QD
     Route: 048

REACTIONS (3)
  - HYPERTENSION [None]
  - INTENTIONAL DRUG MISUSE [None]
  - MULTIPLE SCLEROSIS [None]
